FAERS Safety Report 8931476 (Version 1)
Quarter: 2012Q4

REPORT INFORMATION
  Report Type: 
  Country: CA (occurrence: CN)
  Receive Date: 20121128
  Receipt Date: 20121128
  Transmission Date: 20130627
  Serious: Yes (Other)
  Sender: FDA-Public Use
  Company Number: PHHY2012CN107241

PATIENT
  Sex: Male
  Weight: 60 kg

DRUGS (3)
  1. SEBIVO [Suspect]
     Indication: CHRONIC HEPATITIS B
     Dosage: UNK
     Route: 048
  2. ADEFOVIR DIPIVOXIL [Concomitant]
  3. INTERFERON [Concomitant]

REACTIONS (6)
  - Myoglobinuria [Recovering/Resolving]
  - Blood lactic acid increased [Recovering/Resolving]
  - Lactate dehydrogenase urine increased [Recovering/Resolving]
  - Blood creatine phosphokinase increased [Recovering/Resolving]
  - Myalgia [Recovering/Resolving]
  - Myositis [Recovering/Resolving]
